FAERS Safety Report 5046389-4 (Version None)
Quarter: 2006Q2

REPORT INFORMATION
  Report Type: 
  Country: None (occurrence: None)
  Receive Date: 20060601
  Receipt Date: 20060214
  Transmission Date: 20061013
  Serious: No
  Sender: FDA-Public Use
  Company Number: 2006PV008689

PATIENT
  Sex: Female

DRUGS (2)
  1. BYETTA [Suspect]
     Indication: DIABETES MELLITUS
     Dosage: SEE IMAGE
     Route: 058
     Dates: end: 20060213
  2. BYETTA [Suspect]
     Indication: DIABETES MELLITUS
     Dosage: SEE IMAGE
     Route: 058

REACTIONS (2)
  - INJECTION SITE URTICARIA [None]
  - WEIGHT DECREASED [None]
